FAERS Safety Report 12741660 (Version 10)
Quarter: 2017Q1

REPORT INFORMATION
  Report Type: Spontaneous
  Country: BR (occurrence: BR)
  Receive Date: 20160914
  Receipt Date: 20170330
  Transmission Date: 20170428
  Serious: Yes (Hospitalization, Other)
  Sender: FDA-Public Use
  Company Number: BR-TAKEDA-2016MPI007999

PATIENT
  Age: 79 Year
  Sex: Male
  Weight: 79 kg

DRUGS (18)
  1. HYDRALAZINE [Concomitant]
     Active Substance: HYDRALAZINE HYDROCHLORIDE
     Indication: HYPERTENSION
     Dosage: 25 MG, TID
     Route: 048
     Dates: start: 201603
  2. DARATUMUMAB [Suspect]
     Active Substance: DARATUMUMAB
     Indication: PLASMA CELL MYELOMA
     Dosage: 16 MG, Q3WEEKS
     Route: 042
     Dates: start: 20160519
  3. CODEINE [Concomitant]
     Active Substance: CODEINE
     Indication: CANCER PAIN
     Dosage: 25 MG, UNK
     Route: 048
     Dates: start: 201603
  4. ALLOPURINOL. [Concomitant]
     Active Substance: ALLOPURINOL
     Indication: PROPHYLAXIS
     Dosage: 300 MG, QD
     Route: 048
     Dates: start: 20160512
  5. PREDNISONE. [Suspect]
     Active Substance: PREDNISONE
     Indication: PLASMA CELL MYELOMA
     Dosage: 112 MG, UNK
     Route: 048
     Dates: start: 20160520, end: 20160702
  6. ENALAPRIL [Concomitant]
     Active Substance: ENALAPRIL
     Indication: HYPERTENSION
     Dosage: 5 MG, QD
     Route: 048
     Dates: start: 201603
  7. CLONIDINE. [Concomitant]
     Active Substance: CLONIDINE
     Indication: HYPERTENSION
     Dosage: 150 ?G, TID
     Route: 048
     Dates: start: 201603
  8. ACYCLOVIR                          /00587301/ [Concomitant]
     Active Substance: ACYCLOVIR
     Indication: ANTIVIRAL PROPHYLAXIS
     Dosage: 300 MG, TID
     Route: 048
     Dates: start: 20160519
  9. OMEPRAZOLE. [Concomitant]
     Active Substance: OMEPRAZOLE
     Indication: GASTRITIS PROPHYLAXIS
     Dosage: 20 MG, QD
     Route: 048
     Dates: start: 201603
  10. PAMIDRONATE [Concomitant]
     Active Substance: PAMIDRONATE DISODIUM
     Indication: PLASMA CELL MYELOMA
     Dosage: 90 MG, MONTHLY
     Route: 042
     Dates: start: 201604
  11. VELCADE [Suspect]
     Active Substance: BORTEZOMIB
     Indication: PLASMA CELL MYELOMA
     Dosage: 2.43 MG, 1/WEEK
     Route: 058
     Dates: start: 20160519, end: 20160523
  12. MELPHALAN [Suspect]
     Active Substance: MELPHALAN
     Indication: PLASMA CELL MYELOMA
     Dosage: 16.8 MG, UNK
     Route: 048
     Dates: start: 20160519, end: 20160702
  13. DOXAZOSIN [Concomitant]
     Active Substance: DOXAZOSIN\DOXAZOSIN MESYLATE
     Indication: BENIGN PROSTATIC HYPERPLASIA
     Dosage: 2 MG, UNK
     Route: 048
     Dates: start: 2010
  14. PREDNISONE. [Suspect]
     Active Substance: PREDNISONE
     Dosage: 110 MG, UNK
     Route: 048
     Dates: start: 20160810
  15. MELPHALAN [Suspect]
     Active Substance: MELPHALAN
     Dosage: 16 MG, UNK
     Route: 048
     Dates: start: 20160810
  16. FUROSEMIDE. [Concomitant]
     Active Substance: FUROSEMIDE
     Indication: HYPERTENSION
     Dosage: 40 MG, QD
     Route: 048
     Dates: start: 201603
  17. VELCADE [Suspect]
     Active Substance: BORTEZOMIB
     Dosage: 2.47 MG, 1/WEEK
     Route: 058
     Dates: start: 20160530, end: 20160831
  18. VELCADE [Suspect]
     Active Substance: BORTEZOMIB
     Dosage: 2.37 MG, 1/WEEK
     Route: 058
     Dates: start: 20160926

REACTIONS (4)
  - Neutropenia [Unknown]
  - Infusion related reaction [Unknown]
  - Pneumonia [Recovered/Resolved]
  - Tremor [Unknown]

NARRATIVE: CASE EVENT DATE: 20160519
